FAERS Safety Report 8817077 (Version 1)
Quarter: 2012Q4

REPORT INFORMATION
  Report Type: Spontaneous
  Country: US (occurrence: None)
  Receive Date: 20121003
  Receipt Date: 20121003
  Transmission Date: 20130627
  Serious: Yes (Other)
  Sender: FDA-Public Use
  Company Number: None

PATIENT
  Age: 32 Year
  Sex: Female
  Weight: 46.72 kg

DRUGS (1)
  1. CYMBALTA [Suspect]
     Indication: DEPRESSION
     Dosage: 60 1 po
     Route: 048
     Dates: start: 20120803, end: 20120927

REACTIONS (6)
  - Premenstrual syndrome [None]
  - Anxiety [None]
  - Depression [None]
  - Crying [None]
  - Drug dependence [None]
  - Fluid retention [None]
